FAERS Safety Report 18740370 (Version 5)
Quarter: 2021Q1

REPORT INFORMATION
  Report Type: Report from Study
  Country: US (occurrence: US)
  Receive Date: 20210114
  Receipt Date: 20210222
  Transmission Date: 20210419
  Serious: Yes (Hospitalization)
  Sender: FDA-Public Use
  Company Number: US-EISAI MEDICAL RESEARCH-EC-2021-086130

PATIENT
  Age: 67 Year
  Sex: Male

DRUGS (3)
  1. LENVIMA [Suspect]
     Active Substance: LENVATINIB
     Route: 048
     Dates: start: 20210205, end: 20210209
  2. LENVIMA [Suspect]
     Active Substance: LENVATINIB
     Route: 048
     Dates: start: 202101, end: 202101
  3. LENVIMA [Suspect]
     Active Substance: LENVATINIB
     Indication: HEPATIC CANCER
     Route: 048
     Dates: start: 20210105, end: 20210111

REACTIONS (5)
  - Disorientation [Recovered/Resolved]
  - Hepatic enzyme increased [Recovering/Resolving]
  - Somnolence [Recovering/Resolving]
  - Ammonia increased [Recovered/Resolved]
  - Hypertension [Unknown]

NARRATIVE: CASE EVENT DATE: 202101
